FAERS Safety Report 25330989 (Version 3)
Quarter: 2025Q3

REPORT INFORMATION
  Report Type: Report from Study
  Country: IN (occurrence: IN)
  Receive Date: 20250519
  Receipt Date: 20250905
  Transmission Date: 20251021
  Serious: Yes (Hospitalization, Other)
  Sender: NOVARTIS
  Company Number: IN-002147023-NVSC2023IN262845

PATIENT
  Age: 44 Year
  Sex: Female

DRUGS (2)
  1. RIBOCICLIB [Suspect]
     Active Substance: RIBOCICLIB
     Indication: Hormone receptor positive HER2 negative breast cancer
     Dosage: 600 MG, QD
     Route: 048
     Dates: start: 20190202
  2. RIBOCICLIB [Suspect]
     Active Substance: RIBOCICLIB
     Indication: Breast cancer metastatic
     Dosage: 200 MG, QD
     Route: 048
     Dates: start: 20190209

REACTIONS (13)
  - Positron emission tomogram abnormal [Recovered/Resolved]
  - Blood test abnormal [Unknown]
  - Corneal toxicity [Recovering/Resolving]
  - Bone lesion [Recovered/Resolved]
  - Peritoneal thickening [Recovered/Resolved]
  - Pulmonary mass [Recovered/Resolved]
  - Pleural effusion [Recovered/Resolved]
  - Pleural thickening [Recovered/Resolved]
  - Eye haemorrhage [Unknown]
  - Nasopharyngitis [Recovered/Resolved]
  - Headache [Unknown]
  - Bone lesion [Unknown]
  - Peritoneal thickening [Unknown]

NARRATIVE: CASE EVENT DATE: 20200820
